FAERS Safety Report 7667777-3 (Version None)
Quarter: 2011Q3

REPORT INFORMATION
  Report Type: 
  Country: None (occurrence: None)
  Receive Date: 20110806
  Receipt Date: 20110302
  Transmission Date: 20111222
  Serious: Yes (Other)
  Sender: FDA-Public Use
  Company Number: US-ABBOTT-11P-163-0709286-00

PATIENT
  Sex: Male
  Weight: 111.23 kg

DRUGS (12)
  1. DILTIAZEM [Concomitant]
     Indication: PRODUCT USED FOR UNKNOWN INDICATION
  2. NIASPAN [Suspect]
     Indication: BLOOD CHOLESTEROL INCREASED
  3. CENTRUM SILVER [Concomitant]
     Indication: PRODUCT USED FOR UNKNOWN INDICATION
  4. LIPITOR [Concomitant]
     Indication: BLOOD CHOLESTEROL
  5. NIASPAN [Suspect]
  6. BENICAR [Concomitant]
     Indication: BLOOD PRESSURE
  7. LOVAZA [Concomitant]
     Indication: BLOOD CHOLESTEROL
  8. ASPIRIN [Concomitant]
     Indication: PRODUCT USED FOR UNKNOWN INDICATION
  9. COQ10 [Concomitant]
     Indication: PRODUCT USED FOR UNKNOWN INDICATION
  10. ALLOPURINOL [Concomitant]
     Indication: GOUT
  11. NIASPAN [Suspect]
  12. TAMSULOSIN HCL [Concomitant]
     Indication: PROSTATIC DISORDER

REACTIONS (7)
  - SKIN WARM [None]
  - ATRIAL FIBRILLATION [None]
  - FLUSHING [None]
  - PARAESTHESIA [None]
  - ELECTROCARDIOGRAM AMBULATORY ABNORMAL [None]
  - PRURITUS [None]
  - ERYTHEMA [None]
